FAERS Safety Report 7778534-1 (Version None)
Quarter: 2011Q3

REPORT INFORMATION
  Report Type: 
  Country: None (occurrence: None)
  Receive Date: 20110926
  Receipt Date: 20110913
  Transmission Date: 20111222
  Serious: Yes (Hospitalization, Other)
  Sender: FDA-Public Use
  Company Number: US-BAYER-2010-002212

PATIENT
  Age: 30 Year
  Sex: Female
  Weight: 136 kg

DRUGS (15)
  1. NAPROXEN SODIUM AND PSEUDOEPHEDRINE HYDROCHLORIDE [Concomitant]
     Indication: PAIN
     Dosage: UNK
     Dates: start: 19900101, end: 20100101
  2. LEXAPRO [Concomitant]
     Dosage: UNK
     Dates: start: 20060522
  3. YASMIN [Suspect]
     Indication: CONTRACEPTION
     Dosage: UNK
     Dates: start: 19910101, end: 20081001
  4. YAZ [Suspect]
     Indication: CONTRACEPTION
     Dosage: UNK
     Dates: start: 19910101, end: 20081001
  5. AMBIEN [Concomitant]
     Dosage: UNK
     Dates: start: 20060522
  6. YAZ [Suspect]
     Indication: PREMENSTRUAL SYNDROME
  7. DROSPIRENONE AND ETHINYL ESTRADIOL [Suspect]
     Indication: PREMENSTRUAL SYNDROME
  8. VANDAZOLE [Concomitant]
     Dosage: UNK
     Dates: start: 20060428
  9. GLIMEPIRIDE [Concomitant]
     Dosage: UNK
     Dates: start: 20060522
  10. YASMIN [Suspect]
     Indication: PREMENSTRUAL SYNDROME
  11. TRAZODONE HYDROCHLORIDE [Concomitant]
     Dosage: UNK
     Dates: start: 20060522
  12. IBUPROFEN [Concomitant]
     Dosage: UNK
     Dates: start: 20060522
  13. DROSPIRENONE AND ETHINYL ESTRADIOL [Suspect]
     Indication: CONTRACEPTION
     Dosage: UNK
     Dates: start: 19910101, end: 20080101
  14. HUMALOG [Concomitant]
     Indication: DIABETES MELLITUS
     Dosage: UNK
     Dates: start: 20000101, end: 20060101
  15. RISPERDAL [Concomitant]
     Dosage: UNK
     Dates: start: 20060522

REACTIONS (3)
  - PULMONARY EMBOLISM [None]
  - THROMBOSIS [None]
  - PAIN [None]
